FAERS Safety Report 9538946 (Version 1)
Quarter: 2013Q2

REPORT INFORMATION
  Report Type: Spontaneous
  Country: US (occurrence: None)
  Receive Date: 20130507
  Receipt Date: 20130507
  Transmission Date: 20140414
  Serious: No
  Sender: FDA-Public Use
  Company Number: PHEH2013US000497

PATIENT
  Age: 52 Year
  Sex: Female

DRUGS (9)
  1. AFINITOR (RAD) UNKNOWN [Suspect]
     Indication: BREAST CANCER
     Route: 048
     Dates: start: 20121213, end: 20121223
  2. HYDROXYZINE (HYDROXYZINE) [Concomitant]
  3. CLARITIN (LORATADINE) [Concomitant]
  4. ALPRAZOLAM (ALPRAZOLAM) [Concomitant]
  5. FISH OIL (FISH OIL) [Concomitant]
  6. EXEMESTANE (EXEMESTANE) [Concomitant]
  7. OMEPRAZOLE (OMEPRAZOLE) [Concomitant]
  8. BENADRYL (CAMPHOR, DIPHENHYDRAMINE HYDROCHLORIDE, ZINC OZIDE) [Concomitant]
  9. HORMONES (NO INGREDIENTS/SUBSTANCES) [Concomitant]

REACTIONS (3)
  - Skin irritation [None]
  - Urticaria [None]
  - Pruritus [None]
